FAERS Safety Report 9222229 (Version 1)
Quarter: 2013Q2

REPORT INFORMATION
  Report Type: Spontaneous
  Country: US (occurrence: US)
  Receive Date: 20130410
  Receipt Date: 20130410
  Transmission Date: 20140414
  Serious: Yes (Other)
  Sender: FDA-Public Use
  Company Number: US-PFIZER INC-2013109887

PATIENT
  Age: 52 Year
  Sex: Female
  Weight: 54 kg

DRUGS (3)
  1. AROMASIN [Suspect]
     Indication: BREAST CANCER
     Dosage: UNK
     Dates: start: 2010, end: 2011
  2. ZETIA [Concomitant]
     Indication: CARDIAC DISORDER
     Dosage: 60 MG, UNK
  3. HYDROCODONE [Concomitant]
     Indication: PAIN
     Dosage: UNK

REACTIONS (7)
  - Cognitive disorder [Recovered/Resolved]
  - Lower limb fracture [Recovered/Resolved]
  - Osteopenia [Not Recovered/Not Resolved]
  - Cachexia [Recovered/Resolved]
  - Fibromyalgia [Recovered/Resolved]
  - Fatigue [Recovered/Resolved]
  - Feeling abnormal [Recovered/Resolved]
